FAERS Safety Report 10267817 (Version 1)
Quarter: 2014Q2

REPORT INFORMATION
  Report Type: Spontaneous
  Country: US (occurrence: US)
  Receive Date: 20140630
  Receipt Date: 20140630
  Transmission Date: 20141212
  Serious: No
  Sender: FDA-Public Use
  Company Number: US-GLAXOSMITHKLINE-A1041034A

PATIENT
  Sex: Male

DRUGS (2)
  1. RANITIDINE [Suspect]
     Indication: MULTIPLE ALLERGIES
     Route: 048
  2. ZANTAC [Suspect]
     Indication: MULTIPLE ALLERGIES
     Route: 048

REACTIONS (4)
  - Urticaria [Unknown]
  - Off label use [Unknown]
  - Therapeutic response decreased [Unknown]
  - Product quality issue [Unknown]
